FAERS Safety Report 7798254-7 (Version None)
Quarter: 2011Q4

REPORT INFORMATION
  Report Type: 
  Country: None (occurrence: None)
  Receive Date: 20111005
  Receipt Date: 20110926
  Transmission Date: 20120403
  Serious: Yes (Hospitalization)
  Sender: FDA-Public Use
  Company Number: US-NOVOPROD-335894

PATIENT
  Age: 38 Year
  Sex: Female
  Weight: 121.9 kg

DRUGS (5)
  1. VICTOZA [Suspect]
     Indication: TYPE 2 DIABETES MELLITUS
     Dosage: 0.6 MG, QD
     Route: 058
     Dates: start: 20110801, end: 20110922
  2. XANAX [Concomitant]
     Indication: NERVOUSNESS
  3. OPANA [Concomitant]
     Indication: ARTHRITIS
  4. LANTUS [Concomitant]
     Indication: TYPE 2 DIABETES MELLITUS
  5. TWYNSTA                            /06289301/ [Concomitant]
     Indication: HYPERTENSION

REACTIONS (1)
  - CEREBROVASCULAR ACCIDENT [None]
